FAERS Safety Report 7821303-4 (Version None)
Quarter: 2011Q4

REPORT INFORMATION
  Report Type: 
  Country: None (occurrence: None)
  Receive Date: 20111018
  Receipt Date: 20101025
  Transmission Date: 20120403
  Serious: No
  Sender: FDA-Public Use
  Company Number: US-ASTRAZENECA-2010SE50472

PATIENT
  Age: 67 Year
  Sex: Male

DRUGS (1)
  1. SYMBICORT [Suspect]
     Indication: BRONCHITIS CHRONIC
     Dosage: 160/4.5 MCG
     Route: 055

REACTIONS (4)
  - POLLAKIURIA [None]
  - PROSTATIC DISORDER [None]
  - MUSCLE SPASMS [None]
  - URINARY INCONTINENCE [None]
